FAERS Safety Report 8418036-2 (Version None)
Quarter: 2012Q2

REPORT INFORMATION
  Report Type: 
  Country: None (occurrence: None)
  Receive Date: 20120607
  Receipt Date: 20120529
  Transmission Date: 20120825
  Serious: Yes (Hospitalization)
  Sender: FDA-Public Use
  Company Number: CA-JNJFOC-20120520800

PATIENT
  Sex: Male
  Weight: 55.6 kg

DRUGS (2)
  1. REMICADE [Suspect]
     Indication: CROHN'S DISEASE
     Route: 042
     Dates: start: 20110301
  2. IMURAN [Concomitant]
     Dosage: 3 TABLETS
     Route: 065

REACTIONS (1)
  - GASTROINTESTINAL FISTULA [None]
